FAERS Safety Report 8513843-X (Version None)
Quarter: 2012Q3

REPORT INFORMATION
  Report Type: 
  Country: None (occurrence: None)
  Receive Date: 20120717
  Receipt Date: 20120704
  Transmission Date: 20120928
  Serious: Yes (Other)
  Sender: FDA-Public Use
  Company Number: US-RB-042007-12

PATIENT
  Age: 52 Year
  Sex: Female

DRUGS (3)
  1. TOPIRAMATE [Concomitant]
     Indication: PRODUCT USED FOR UNKNOWN INDICATION
  2. ZIPRASIDONE HCL [Concomitant]
     Indication: PRODUCT USED FOR UNKNOWN INDICATION
  3. DELSYM [Suspect]
     Indication: COUGH
     Dosage: INGESTED 120 ML OF THE PRODUCT WITHIN 15 HOURS
     Route: 048
     Dates: start: 20120704

REACTIONS (3)
  - DIZZINESS [None]
  - OVERDOSE [None]
  - DELUSION [None]
